FAERS Safety Report 5144242-9 (Version None)
Quarter: 2006Q4

REPORT INFORMATION
  Report Type: 
  Country: None (occurrence: None)
  Receive Date: 20061106
  Receipt Date: 20061025
  Transmission Date: 20070319
  Serious: Yes (Hospitalization)
  Sender: FDA-Public Use
  Company Number: US-JNJFOC-20051106086

PATIENT
  Sex: Female

DRUGS (3)
  1. ORTHO EVRA [Suspect]
     Indication: CONTRACEPTION
     Route: 062
  2. TRILEPTAL [Concomitant]
  3. PROZAC [Concomitant]

REACTIONS (9)
  - CEREBROVASCULAR ACCIDENT [None]
  - COMPLEX PARTIAL SEIZURES [None]
  - DEPRESSION [None]
  - DRUG DOSE OMISSION [None]
  - HEADACHE [None]
  - HYPERCOAGULATION [None]
  - POST LUMBAR PUNCTURE SYNDROME [None]
  - STRESS [None]
  - VITAMIN B12 DECREASED [None]
